FAERS Safety Report 6191318-3 (Version None)
Quarter: 2009Q2

REPORT INFORMATION
  Report Type: 
  Country: None (occurrence: None)
  Receive Date: 20090515
  Receipt Date: 20071227
  Transmission Date: 20091009
  Serious: Yes (Hospitalization)
  Sender: FDA-Public Use
  Company Number: US-ASTRAZENECA-2006UW23513

PATIENT
  Age: 13721 Day
  Sex: Female
  Weight: 120.2 kg

DRUGS (16)
  1. SEROQUEL [Suspect]
     Indication: DEPRESSION
     Dosage: 25 TO 125 MG
     Route: 048
     Dates: start: 20041203
  2. SEROQUEL [Suspect]
     Indication: ANXIETY
     Dosage: 25 TO 125 MG
     Route: 048
     Dates: start: 20041203
  3. SEROQUEL [Suspect]
     Indication: INSOMNIA
     Dosage: 25 TO 125 MG
     Route: 048
     Dates: start: 20041203
  4. GLUCOPHAGE [Concomitant]
     Indication: TYPE 2 DIABETES MELLITUS
     Route: 048
     Dates: start: 20020319
  5. FERROUS SULFATE TAB [Concomitant]
     Route: 048
     Dates: start: 20030527
  6. HYDROCODONE BITARTRATE [Concomitant]
     Route: 048
     Dates: start: 20001003
  7. AMITRIPTLINE HYDROCHLORIDE TAB [Concomitant]
     Route: 048
     Dates: start: 20040713
  8. IMITREX [Concomitant]
     Route: 048
     Dates: start: 20040806
  9. GLYCOLAX [Concomitant]
     Route: 048
     Dates: start: 20040825
  10. LACTULOSE [Concomitant]
     Route: 048
     Dates: start: 20040825
  11. CELEBREX [Concomitant]
     Route: 048
     Dates: start: 20040929
  12. NITROFURANTOIN [Concomitant]
     Route: 048
     Dates: start: 20001003
  13. MECLOFENAMATE [Concomitant]
     Route: 048
     Dates: start: 20041018
  14. PREVACID [Concomitant]
     Route: 048
     Dates: start: 20000705
  15. CALTRATE [Concomitant]
     Route: 048
     Dates: start: 20050608
  16. ACTOS [Concomitant]
     Route: 048
     Dates: start: 20030325

REACTIONS (20)
  - ABDOMINAL PAIN [None]
  - ARTHRALGIA [None]
  - ARTHROPATHY [None]
  - BACK PAIN [None]
  - BRONCHITIS [None]
  - CHEST PAIN [None]
  - DIABETES MELLITUS [None]
  - DIARRHOEA [None]
  - FURUNCLE [None]
  - INSOMNIA [None]
  - INTERTRIGO [None]
  - JOINT DISLOCATION [None]
  - NEUROPATHY PERIPHERAL [None]
  - OESOPHAGEAL SPASM [None]
  - OESOPHAGITIS [None]
  - PLANTAR FASCIITIS [None]
  - ROTATOR CUFF SYNDROME [None]
  - TONSILLITIS [None]
  - UPPER RESPIRATORY TRACT INFECTION [None]
  - URINARY TRACT INFECTION [None]
